FAERS Safety Report 10654369 (Version 5)
Quarter: 2015Q1

REPORT INFORMATION
  Report Type: Report from Study
  Country: US (occurrence: US)
  Receive Date: 20141216
  Receipt Date: 20150203
  Transmission Date: 20150720
  Serious: Yes (Other)
  Sender: FDA-Public Use
  Company Number: US-BAYER-2014-175786

PATIENT
  Age: 66 Year
  Sex: Male
  Weight: 75 kg

DRUGS (13)
  1. DIOVAN [Concomitant]
     Active Substance: VALSARTAN
     Indication: CORONARY ARTERY DISEASE
     Dosage: DAILY DOSE 80 MG
     Route: 048
     Dates: start: 1995
  2. PREVACID [Concomitant]
     Active Substance: LANSOPRAZOLE
     Indication: GASTROOESOPHAGEAL REFLUX DISEASE
     Dosage: DAILY DOSE 1 DF
     Route: 048
     Dates: start: 1977
  3. VICODIN [Concomitant]
     Active Substance: ACETAMINOPHEN\HYDROCODONE BITARTRATE
     Indication: PALMAR-PLANTAR ERYTHRODYSAESTHESIA SYNDROME
     Dosage: DAILY DOSE 1 DF
     Route: 048
     Dates: start: 20100803
  4. SORAFENIB (RAF KINASE INHIBITOR) [Suspect]
     Active Substance: SORAFENIB
     Indication: THYROID CANCER
     Dosage: UNK
     Route: 048
     Dates: end: 20141107
  5. LIPITOR [Concomitant]
     Active Substance: ATORVASTATIN CALCIUM
     Indication: HYPERLIPIDAEMIA
     Dosage: DAILY DOSE 40 MG
     Route: 048
     Dates: start: 1995
  6. NADOLOL. [Concomitant]
     Active Substance: NADOLOL
     Indication: CORONARY ARTERY DISEASE
     Dosage: DAILY DOSE 20 MG
     Route: 048
     Dates: start: 1995
  7. ACTOS [Concomitant]
     Active Substance: PIOGLITAZONE HYDROCHLORIDE
     Indication: TYPE 2 DIABETES MELLITUS
     Dosage: 45 MG, DAILY
     Dates: start: 2004
  8. FERGON [Concomitant]
     Active Substance: FERROUS GLUCONATE
     Indication: IRON DEFICIENCY ANAEMIA
     Dosage: DAILY DOSE 1 DF
     Route: 048
     Dates: start: 20110407
  9. SYNTHROID [Concomitant]
     Active Substance: LEVOTHYROXINE SODIUM
     Indication: HYPOTHYROIDISM
     Dosage: DAILY DOSE 75 ?G
     Route: 048
     Dates: start: 2006
  10. ALLOPURINOL. [Concomitant]
     Active Substance: ALLOPURINOL
     Indication: HYPERURICAEMIA
     Dosage: DAILY DOSE 300 MG
     Route: 048
     Dates: start: 1995
  11. GLIPIZIDE. [Concomitant]
     Active Substance: GLIPIZIDE
     Indication: TYPE 2 DIABETES MELLITUS
     Dosage: DAILY DOSE 2.5 MG
     Route: 048
     Dates: start: 2004
  12. SORAFENIB (RAF KINASE INHIBITOR) [Suspect]
     Active Substance: SORAFENIB
     Indication: THYROID CANCER
     Dosage: 400 MG, BID
     Route: 048
     Dates: start: 20100710, end: 20120720
  13. ASA [Concomitant]
     Active Substance: ASPIRIN
     Indication: CORONARY ARTERY DISEASE
     Dosage: DAILY DOSE 325 MG
     Route: 048
     Dates: start: 2005

REACTIONS (1)
  - Squamous cell carcinoma of the oral cavity [Recovered/Resolved]

NARRATIVE: CASE EVENT DATE: 20141105
